FAERS Safety Report 19902903 (Version 4)
Quarter: 2021Q4

REPORT INFORMATION
  Report Type: Spontaneous
  Country: US (occurrence: US)
  Receive Date: 20211001
  Receipt Date: 20211028
  Transmission Date: 20220304
  Serious: No
  Sender: FDA-Public Use
  Company Number: US-BIOGEN-2021BI01053984

PATIENT
  Age: 67 Year
  Sex: Female

DRUGS (3)
  1. PLEGRIDY [Suspect]
     Active Substance: PEGINTERFERON BETA-1A
     Indication: Multiple sclerosis
     Route: 065
     Dates: start: 20210924
  2. PLEGRIDY [Suspect]
     Active Substance: PEGINTERFERON BETA-1A
     Route: 065
     Dates: start: 202109
  3. PLEGRIDY [Suspect]
     Active Substance: PEGINTERFERON BETA-1A
     Route: 065
     Dates: start: 20211022

REACTIONS (10)
  - Eye pain [Unknown]
  - Flank pain [Unknown]
  - Chest discomfort [Unknown]
  - Dyspnoea [Unknown]
  - Fatigue [Unknown]
  - Back pain [Unknown]
  - Muscle spasms [Unknown]
  - Influenza like illness [Unknown]
  - Headache [Unknown]
  - Asthenia [Unknown]

NARRATIVE: CASE EVENT DATE: 20210901
